FAERS Safety Report 5793808-1 (Version None)
Quarter: 2008Q2

REPORT INFORMATION
  Report Type: 
  Country: None (occurrence: None)
  Receive Date: 20080601
  Receipt Date: 20080114
  Transmission Date: 20081010
  Serious: No
  Sender: FDA-Public Use
  Company Number: US200801002875

PATIENT
  Age: 56 Year
  Sex: Female
  Weight: 80.7 kg

DRUGS (6)
  1. BYETTA [Suspect]
     Indication: TYPE 2 DIABETES MELLITUS
     Dosage: 5 UG, 2/D, SUBCUTANEOUS
     Route: 058
     Dates: start: 20071101
  2. METFORMIN HCL [Concomitant]
  3. AMARYL [Concomitant]
  4. COREG [Concomitant]
  5. LASIX /USA/ (FUROSEMIDE) [Concomitant]
  6. ALTACE [Concomitant]

REACTIONS (4)
  - ANXIETY [None]
  - DECREASED APPETITE [None]
  - INFLUENZA LIKE ILLNESS [None]
  - STOMACH DISCOMFORT [None]
